FAERS Safety Report 9133263 (Version 2)
Quarter: 2013Q1

REPORT INFORMATION
  Report Type: Spontaneous
  Country: CN (occurrence: CN)
  Receive Date: 20130301
  Receipt Date: 20130311
  Transmission Date: 20140127
  Serious: Yes (Death, Hospitalization, Other)
  Sender: FDA-Public Use
  Company Number: CN-MPIJNJ-2013-01406

PATIENT
  Sex: 0

DRUGS (2)
  1. VELCADE [Suspect]
     Indication: PLASMA CELL MYELOMA
     Dosage: 2 MG, UNK
     Route: 042
     Dates: start: 20130205
  2. DEXAMETHASONE SODIUM PHOSPHATE [Concomitant]
     Indication: PLASMA CELL MYELOMA
     Dosage: 10 MG, UNK
     Dates: start: 20130205

REACTIONS (12)
  - Respiratory failure [Fatal]
  - Blood electrolytes abnormal [Fatal]
  - Hyperpyrexia [Fatal]
  - Coma [Fatal]
  - Tic [Fatal]
  - Lung infection [Fatal]
  - Confusional state [Fatal]
  - Bone disorder [Unknown]
  - Tachycardia [Fatal]
  - Abdominal pain [Recovered/Resolved]
  - Liver injury [Recovered/Resolved]
  - Back pain [Unknown]
